FAERS Safety Report 5431341-7 (Version None)
Quarter: 2007Q3

REPORT INFORMATION
  Report Type: 
  Country: None (occurrence: None)
  Receive Date: 20070830
  Receipt Date: 20070427
  Transmission Date: 20080115
  Serious: No
  Sender: FDA-Public Use
  Company Number: A0649061A

PATIENT
  Age: 72 Year
  Sex: Female

DRUGS (5)
  1. WELLBUTRIN XL [Suspect]
     Indication: DEPRESSION
     Dosage: 300MG PER DAY
     Route: 048
     Dates: start: 19950101
  2. ATACAND [Concomitant]
  3. SYNTHROID [Concomitant]
  4. ESTRACE [Concomitant]
  5. FOSAMAX [Concomitant]

REACTIONS (2)
  - CRYING [None]
  - DRUG INEFFECTIVE [None]
